FAERS Safety Report 7751072-8 (Version None)
Quarter: 2011Q3

REPORT INFORMATION
  Report Type: 
  Country: None (occurrence: None)
  Receive Date: 20110912
  Receipt Date: 20110829
  Transmission Date: 20111222
  Serious: Yes (Hospitalization, Other)
  Sender: FDA-Public Use
  Company Number: AUR-APL-2011-04890

PATIENT
  Sex: Male

DRUGS (4)
  1. LIPITOR [Suspect]
     Indication: BLOOD CHOLESTEROL INCREASED
     Dosage: (10 MG,1 D), ORAL
     Route: 048
     Dates: start: 19970101
  2. GLYBURIDE [Concomitant]
  3. SIMVASTATIN [Suspect]
     Indication: BLOOD CHOLESTEROL INCREASED
     Dosage: (20 MG,1 D), ORAL
     Route: 048
     Dates: start: 20110401
  4. METFORMIN [Concomitant]

REACTIONS (2)
  - MYOCARDIAL INFARCTION [None]
  - BLOOD GLUCOSE INCREASED [None]
